FAERS Safety Report 21150076 (Version 1)
Quarter: 2022Q3

REPORT INFORMATION
  Report Type: Spontaneous
  Country: US (occurrence: US)
  Receive Date: 20220729
  Receipt Date: 20220729
  Transmission Date: 20221026
  Serious: No
  Sender: FDA-Public Use
  Company Number: US-PFIZER INC-202201016781

PATIENT

DRUGS (1)
  1. NOREPINEPHRINE BITARTRATE [Suspect]
     Active Substance: NOREPINEPHRINE BITARTRATE
     Dosage: UNK
     Route: 042

REACTIONS (5)
  - Medication error [Unknown]
  - Blood pressure increased [Unknown]
  - Headache [Unknown]
  - Flushing [Unknown]
  - Heart rate increased [Unknown]
